FAERS Safety Report 8442164-9 (Version None)
Quarter: 2012Q2

REPORT INFORMATION
  Report Type: 
  Country: None (occurrence: None)
  Receive Date: 20120615
  Receipt Date: 20120215
  Transmission Date: 20120825
  Serious: No
  Sender: FDA-Public Use
  Company Number: US-NOVEN-12US004114

PATIENT
  Sex: Male

DRUGS (5)
  1. DAYTRANA [Suspect]
     Indication: ATTENTION DEFICIT/HYPERACTIVITY DISORDER
     Dosage: 30MG AND 1/2 PATCH DAILY
     Route: 062
     Dates: start: 20120214
  2. DAYTRANA [Suspect]
     Dosage: 30 MG, QD
     Route: 062
  3. DAYTRANA [Suspect]
     Dosage: 15 MG, QD
     Route: 062
     Dates: start: 20080101
  4. DAYTRANA [Suspect]
     Dosage: 20 MG, QD
     Route: 062
  5. DAYTRANA [Suspect]
     Dosage: 10 MG, QD
     Route: 062
     Dates: start: 20060101

REACTIONS (4)
  - WRONG TECHNIQUE IN DRUG USAGE PROCESS [None]
  - DECREASED APPETITE [None]
  - DISTURBANCE IN ATTENTION [None]
  - INSOMNIA [None]
